FAERS Safety Report 8585666-7 (Version None)
Quarter: 2012Q3

REPORT INFORMATION
  Report Type: 
  Country: None (occurrence: None)
  Receive Date: 20120810
  Receipt Date: 20120801
  Transmission Date: 20120928
  Serious: Yes (Hospitalization)
  Sender: FDA-Public Use
  Company Number: DE-ASTRAZENECA-2012SE51760

PATIENT
  Sex: Female

DRUGS (2)
  1. ZOLADEX [Suspect]
     Indication: BREAST CANCER
     Route: 058
  2. TAMOXYFEN [Concomitant]
     Indication: BREAST CANCER

REACTIONS (2)
  - URETHRITIS [None]
  - CYSTITIS [None]
